FAERS Safety Report 16321107 (Version 3)
Quarter: 2022Q1

REPORT INFORMATION
  Report Type: Spontaneous
  Country: US (occurrence: US)
  Receive Date: 20190516
  Receipt Date: 20220117
  Transmission Date: 20220423
  Serious: Yes (Other)
  Sender: FDA-Public Use
  Company Number: US-GILEAD-2019-0407730

PATIENT
  Age: 50 Year
  Sex: Male
  Weight: 87.528 kg

DRUGS (40)
  1. VIREAD [Suspect]
     Active Substance: TENOFOVIR DISOPROXIL FUMARATE
     Indication: HIV infection
     Dosage: UNK
     Route: 048
     Dates: start: 201210, end: 201301
  2. TRUVADA [Suspect]
     Active Substance: EMTRICITABINE\TENOFOVIR DISOPROXIL FUMARATE
     Indication: HIV infection
     Dosage: UNK
     Route: 048
  3. ATRIPLA [Suspect]
     Active Substance: EFAVIRENZ\EMTRICITABINE\TENOFOVIR DISOPROXIL FUMARATE
     Indication: HIV infection
     Dosage: UNK
     Route: 048
     Dates: start: 20120110, end: 20140504
  4. ATRIPLA [Suspect]
     Active Substance: EFAVIRENZ\EMTRICITABINE\TENOFOVIR DISOPROXIL FUMARATE
     Dosage: UNK
     Route: 065
     Dates: start: 20130110, end: 201405
  5. STRIBILD [Suspect]
     Active Substance: COBICISTAT\ELVITEGRAVIR\EMTRICITABINE\TENOFOVIR DISOPROXIL FUMARATE
     Indication: HIV infection
     Dosage: UNK
     Route: 048
     Dates: start: 2014, end: 2014
  6. ASPIRIN [Concomitant]
     Active Substance: ASPIRIN
  7. CALCITRIOL [Concomitant]
     Active Substance: CALCITRIOL
  8. ERGOCALCIFEROL [Concomitant]
     Active Substance: ERGOCALCIFEROL
  9. ESOMEPRAZOLE [Concomitant]
     Active Substance: ESOMEPRAZOLE
  10. GABAPENTIN [Concomitant]
     Active Substance: GABAPENTIN
  11. HUMALOG [Concomitant]
     Active Substance: INSULIN LISPRO
  12. INSULIN NOS [Concomitant]
     Active Substance: INSULIN NOS
  13. LANTUS [Concomitant]
     Active Substance: INSULIN GLARGINE
  14. METOPROLOL SUCCINATE [Concomitant]
     Active Substance: METOPROLOL SUCCINATE
  15. SIMVASTATIN [Concomitant]
     Active Substance: SIMVASTATIN
  16. TRAVOPROST [Concomitant]
     Active Substance: TRAVOPROST
  17. UREA [Concomitant]
     Active Substance: UREA
  18. MIRCERA [Concomitant]
     Active Substance: METHOXY POLYETHYLENE GLYCOL-EPOETIN BETA
  19. ZEMPLAR [Concomitant]
     Active Substance: PARICALCITOL
  20. VENOFER [Concomitant]
     Active Substance: IRON SUCROSE
  21. ONDANSETRON [Concomitant]
     Active Substance: ONDANSETRON
  22. FLUZONE [Concomitant]
     Active Substance: INFLUENZA A VIRUS A/CALIFORNIA/7/2009 X-179A (H1N1) ANTIGEN (FORMALDEHYDE INACTIVATED)\INFLUENZA A V
  23. LIQUACEL [Concomitant]
  24. TIVICAY [Concomitant]
     Active Substance: DOLUTEGRAVIR SODIUM
  25. ZIAGEN [Concomitant]
     Active Substance: ABACAVIR SULFATE
  26. VITAMIN B [Concomitant]
     Active Substance: VITAMIN B
  27. CALCIUM ACETATE [Concomitant]
     Active Substance: CALCIUM ACETATE
  28. CLOPIDOGREL [Concomitant]
     Active Substance: CLOPIDOGREL BISULFATE
  29. COSOPT [Concomitant]
     Active Substance: DORZOLAMIDE HYDROCHLORIDE\TIMOLOL MALEATE
  30. EPIVIR [Concomitant]
     Active Substance: LAMIVUDINE
  31. LATANOPROST [Concomitant]
     Active Substance: LATANOPROST
  32. NIFEDIPINE [Concomitant]
     Active Substance: NIFEDIPINE
  33. PANTOPRAZOLE [Concomitant]
     Active Substance: PANTOPRAZOLE
  34. ZINC [Concomitant]
     Active Substance: ZINC
  35. CRIXIVAN [Concomitant]
     Active Substance: INDINAVIR SULFATE
  36. NORVIR [Concomitant]
     Active Substance: RITONAVIR
  37. EFFEXOR [Concomitant]
     Active Substance: VENLAFAXINE HYDROCHLORIDE
  38. LISINOPRIL [Concomitant]
     Active Substance: LISINOPRIL
  39. HYDROCHLOROTHIAZIDE [Concomitant]
     Active Substance: HYDROCHLOROTHIAZIDE
  40. CLONIDINE [Concomitant]
     Active Substance: CLONIDINE

REACTIONS (10)
  - End stage renal disease [Not Recovered/Not Resolved]
  - Chronic kidney disease [Not Recovered/Not Resolved]
  - Chronic kidney disease-mineral and bone disorder [Not Recovered/Not Resolved]
  - Renal failure [Unknown]
  - Pain [Not Recovered/Not Resolved]
  - Emotional distress [Not Recovered/Not Resolved]
  - Anxiety [Not Recovered/Not Resolved]
  - Anhedonia [Not Recovered/Not Resolved]
  - Economic problem [Unknown]
  - Depression [Unknown]

NARRATIVE: CASE EVENT DATE: 20140101
